FAERS Safety Report 5753194-X (Version None)
Quarter: 2008Q2

REPORT INFORMATION
  Report Type: 
  Country: None (occurrence: None)
  Receive Date: 20080530
  Receipt Date: 20080528
  Transmission Date: 20081010
  Serious: Yes (Other)
  Sender: FDA-Public Use
  Company Number: FR-BAYER-200819229GPV

PATIENT
  Age: 53 Year
  Sex: Female

DRUGS (2)
  1. BETAFERON [Suspect]
     Indication: MULTIPLE SCLEROSIS
     Route: 058
     Dates: start: 20040101
  2. BETAFERON [Suspect]
     Route: 058
     Dates: start: 20080201

REACTIONS (1)
  - MYELODYSPLASTIC SYNDROME [None]
